FAERS Safety Report 5344913-5 (Version None)
Quarter: 2007Q2

REPORT INFORMATION
  Report Type: 
  Country: None (occurrence: None)
  Receive Date: 20070417
  Receipt Date: 20060821
  Transmission Date: 20071010
  Serious: Yes (Other)
  Sender: FDA-Public Use
  Company Number: PHEH2006US10762

PATIENT
  Age: 60 Year
  Sex: Female

DRUGS (7)
  1. FORADIL [Suspect]
     Indication: ASTHMA
     Dosage: SEE IMAGE
     Route: 055
     Dates: start: 20050801, end: 20060801
  2. FORADIL [Suspect]
     Indication: ASTHMA
     Dosage: SEE IMAGE
     Route: 055
     Dates: start: 20060801
  3. ANTIBIOTICS (NO INGREDIENTS/SUBSTANCES) [Concomitant]
  4. SNIGULAIR (MONTELUKAST) [Concomitant]
  5. ALBUTEROL [Concomitant]
  6. FOSAMAX [Concomitant]
  7. PROTONIX [Concomitant]

REACTIONS (5)
  - ABDOMINAL PAIN UPPER [None]
  - CANDIDIASIS [None]
  - DRUG INEFFECTIVE [None]
  - EXPIRED DRUG ADMINISTERED [None]
  - GALLBLADDER OPERATION [None]
